FAERS Safety Report 9945396 (Version 1)
Quarter: 2014Q1

REPORT INFORMATION
  Report Type: Report from Study
  Country: US (occurrence: US)
  Receive Date: 20140303
  Receipt Date: 20140303
  Transmission Date: 20141002
  Serious: No
  Sender: FDA-Public Use
  Company Number: US-ABBVIE-13P-163-1050818-00

PATIENT
  Age: 37 Year
  Sex: Male

DRUGS (4)
  1. HUMIRA [Suspect]
     Indication: CROHN^S DISEASE
     Dates: start: 201210
  2. CLONAPINE [Concomitant]
     Indication: ANXIETY
  3. TRILEPTAL [Concomitant]
     Indication: BIPOLAR DISORDER
  4. PRILOSEC [Concomitant]
     Indication: GASTROOESOPHAGEAL REFLUX DISEASE
     Dosage: 20MG DAILY

REACTIONS (2)
  - Joint crepitation [Recovering/Resolving]
  - Oropharyngeal pain [Recovering/Resolving]
